FAERS Safety Report 10906964 (Version 1)
Quarter: 2015Q1

REPORT INFORMATION
  Report Type: Spontaneous
  Country: US (occurrence: None)
  Receive Date: 20150309
  Receipt Date: 20150309
  Transmission Date: 20150721
  Serious: Yes (Life-Threatening)
  Sender: FDA-Public Use
  Company Number: 2771927

PATIENT
  Age: 7 Week
  Sex: Female

DRUGS (1)
  1. AMIODARONE [Suspect]
     Active Substance: AMIODARONE
     Indication: SUPRAVENTRICULAR TACHYCARDIA
     Dosage: THERAPY DATES/DURATION: OVER 60 MINUTES, 5 MG/KG MILLIGRAM(S)/KILOGRAM, INTRAVENOUS BOLUS
     Route: 040

REACTIONS (7)
  - Acute kidney injury [None]
  - Circulatory collapse [None]
  - Metabolic acidosis [None]
  - Transaminases increased [None]
  - Left ventricular dysfunction [None]
  - Supraventricular tachycardia [None]
  - Thrombocytopenia [None]
